FAERS Safety Report 25928375 (Version 2)
Quarter: 2025Q4

REPORT INFORMATION
  Report Type: Spontaneous
  Country: JP (occurrence: JP)
  Receive Date: 20251016
  Receipt Date: 20251223
  Transmission Date: 20260118
  Serious: Yes (Other)
  Sender: MERCK SHARP & DOHME LLC
  Company Number: JP-009507513-2339761

PATIENT
  Age: 72 Year

DRUGS (2)
  1. KEYTRUDA [Suspect]
     Active Substance: PEMBROLIZUMAB
     Indication: Clear cell renal cell carcinoma
     Dosage: ROA: INTRAVENOUS DRIP; ADMINISTRATION PERIOD: 1
     Route: 041
  2. LENVIMA [Suspect]
     Active Substance: LENVATINIB
     Indication: Clear cell renal cell carcinoma
     Dosage: STRENGTH: 10 MG
     Route: 048

REACTIONS (3)
  - Cardiac failure [Unknown]
  - Therapy partial responder [Unknown]
  - Hypertension [Recovered/Resolved]
